FAERS Safety Report 6808361-0 (Version None)
Quarter: 2010Q2

REPORT INFORMATION
  Report Type: 
  Country: None (occurrence: None)
  Receive Date: 20100629
  Receipt Date: 20090615
  Transmission Date: 20101027
  Serious: No
  Sender: FDA-Public Use
  Company Number: US-PFIZER INC-2009197038

PATIENT
  Sex: Female

DRUGS (3)
  1. SOLU-CORTEF [Suspect]
     Indication: MUSCULOSKELETAL PAIN
     Dosage: UNK
     Dates: end: 20090331
  2. LEVOTHYROXINE [Concomitant]
     Dosage: UNK
  3. METOPROLOL [Concomitant]
     Dosage: UNK

REACTIONS (2)
  - ERYTHEMA [None]
  - FLUSHING [None]
